FAERS Safety Report 5694293-0 (Version None)
Quarter: 2008Q2

REPORT INFORMATION
  Report Type: 
  Country: None (occurrence: None)
  Receive Date: 20080404
  Receipt Date: 20080325
  Transmission Date: 20081010
  Serious: Yes (Hospitalization)
  Sender: FDA-Public Use
  Company Number: US-JNJFOC-20080306266

PATIENT
  Sex: Male
  Weight: 90.72 kg

DRUGS (9)
  1. FENTANYL TRANSDERMAL SYSTEM [Suspect]
     Route: 062
  2. FENTANYL TRANSDERMAL SYSTEM [Suspect]
     Route: 062
  3. FENTANYL TRANSDERMAL SYSTEM [Suspect]
     Route: 062
  4. FENTANYL TRANSDERMAL SYSTEM [Suspect]
     Route: 062
  5. FENTANYL TRANSDERMAL SYSTEM [Suspect]
     Indication: PAIN
     Route: 062
  6. ASPIRIN [Concomitant]
     Indication: CARDIAC DISORDER
     Route: 048
  7. CARDIZEM CD [Concomitant]
     Indication: CARDIAC DISORDER
     Route: 048
  8. CYCLOBENZAPRINE HCL [Concomitant]
     Indication: MUSCLE RELAXANT THERAPY
     Route: 048
  9. FOLIC ACID [Concomitant]
     Indication: CARDIAC DISORDER
     Route: 048

REACTIONS (6)
  - CHEST PAIN [None]
  - DYSPNOEA [None]
  - FLUSHING [None]
  - LETHARGY [None]
  - NAUSEA [None]
  - PAIN [None]
